FAERS Safety Report 9397840 (Version 1)
Quarter: 2013Q3

REPORT INFORMATION
  Report Type: Spontaneous
  Country: US (occurrence: None)
  Receive Date: 20130711
  Receipt Date: 20130711
  Transmission Date: 20140515
  Serious: Yes (Life-Threatening)
  Sender: FDA-Public Use
  Company Number: None

PATIENT
  Sex: 0

DRUGS (2)
  1. LOTREL [Suspect]
     Dosage: CAPSULE TAKEN BEFORE BED TIME. AS DIRECTED.
     Dates: end: 20130628
  2. LOTREL [Suspect]
     Dosage: CAPSULE TAKEN BEFORE BED TIME. AS DIRECTED.
     Dates: end: 20130628

REACTIONS (2)
  - Dyspnoea [None]
  - Swollen tongue [None]
